FAERS Safety Report 7614075 (Version 3)
Quarter: 2013Q4

REPORT INFORMATION
  Report Type: Spontaneous
  Country: US (occurrence: US)
  Receive Date: 20101001
  Receipt Date: 20131224
  Transmission Date: 20140711
  Serious: Yes (Hospitalization)
  Sender: FDA-Public Use
  Company Number: US-BAYER-201034738NA

PATIENT
  Age: 21 Year
  Sex: Female
  Weight: 77.1 kg

DRUGS (17)
  1. YASMIN [Suspect]
     Indication: ACNE
     Dosage: UNK
     Route: 048
     Dates: start: 20031202, end: 20080606
  2. YASMIN [Suspect]
     Indication: DYSMENORRHOEA
     Dosage: UNK
     Dates: start: 20090720, end: 200908
  3. YASMIN [Suspect]
     Indication: DYSMENORRHOEA
  4. OCELLA [Suspect]
     Indication: ACNE
     Dosage: UNK
     Dates: start: 20080812, end: 20091226
  5. OCELLA [Suspect]
     Indication: DYSMENORRHOEA
  6. OCELLA [Suspect]
     Indication: DYSMENORRHOEA
  7. LEVOTHYROXINE SODIUM [Concomitant]
     Indication: HYPOTHYROIDISM
     Dosage: UNK
     Dates: start: 2008, end: 2009
  8. NAPROXEN [Concomitant]
     Dosage: UNK
     Dates: start: 2008
  9. PERCOCET [Concomitant]
  10. OMEPRAZOLE [Concomitant]
  11. PHENERGAN [Concomitant]
  12. SYNTHROID [Concomitant]
  13. CLARINEX [DESLORATADINE] [Concomitant]
  14. PRILOSEC [Concomitant]
  15. PHENERGAN [PROMETHAZINE] [Concomitant]
  16. NAPROSYN [Concomitant]
  17. IMITREX [Concomitant]
     Indication: MIGRAINE
     Dosage: 100 MG, UNK
     Route: 048

REACTIONS (4)
  - Gallbladder disorder [Recovered/Resolved]
  - Cholecystitis [None]
  - Biliary dyskinesia [None]
  - Off label use [None]
